FAERS Safety Report 12574506 (Version 2)
Quarter: 2016Q3

REPORT INFORMATION
  Report Type: Spontaneous
  Country: JP (occurrence: JP)
  Receive Date: 20160720
  Receipt Date: 20160816
  Transmission Date: 20161109
  Serious: Yes (Other)
  Sender: FDA-Public Use
  Company Number: JP-GLAXOSMITHKLINE-JP2016JPN101463

PATIENT
  Age: 16 Year
  Sex: Male
  Weight: 62 kg

DRUGS (5)
  1. E KEPPRA [Concomitant]
     Active Substance: LEVETIRACETAM
     Dosage: 3000 MG, 1D
  2. MYSTAN [Concomitant]
     Active Substance: CLOBAZAM
     Dosage: 10 MG, 1D
  3. MYSTAN [Concomitant]
     Active Substance: CLOBAZAM
     Dosage: 35 MG, 1D
  4. LAMICTAL [Suspect]
     Active Substance: LAMOTRIGINE
     Indication: EPILEPSY
     Dosage: 200 MG, 1D
     Route: 048
     Dates: start: 20150123, end: 20160105
  5. DEPAKENE [Concomitant]
     Active Substance: VALPROIC ACID
     Dosage: 600 MG, 1D

REACTIONS (3)
  - Sinus node dysfunction [Recovering/Resolving]
  - Fall [Unknown]
  - Arrhythmia [Recovering/Resolving]

NARRATIVE: CASE EVENT DATE: 20150424
